FAERS Safety Report 20535058 (Version 1)
Quarter: 2022Q1

REPORT INFORMATION
  Report Type: Spontaneous
  Country: NL (occurrence: NL)
  Receive Date: 20220302
  Receipt Date: 20220302
  Transmission Date: 20220423
  Serious: Yes (Other)
  Sender: FDA-Public Use
  Company Number: None

PATIENT
  Sex: Female
  Weight: 59 kg

DRUGS (3)
  1. TRAMADOL [Suspect]
     Active Substance: TRAMADOL
     Indication: Pain
     Dosage: 48 GTT DAILY; 4X A DAY 12 DROPS (30MG PER DOSE,THERAPY  END DATE: ASKED BUT UNKNOWN?BRAND NAME NOT S
     Route: 065
     Dates: start: 2012
  2. TRAMADOL [Suspect]
     Active Substance: TRAMADOL
     Indication: Multiple epiphyseal dysplasia
  3. ACETAMINOPHEN [Concomitant]
     Active Substance: ACETAMINOPHEN
     Dosage: FORM STRENGTH: 1000 MG, BRAND NAME NOT SPECIFIED, THERAPY START DATE AND END DATE: ASKED BUT UNKNOWN

REACTIONS (9)
  - Mental impairment [Not Recovered/Not Resolved]
  - Disturbance in attention [Not Recovered/Not Resolved]
  - Thirst [Not Recovered/Not Resolved]
  - Fatigue [Not Recovered/Not Resolved]
  - Emotional disorder [Not Recovered/Not Resolved]
  - Dry throat [Not Recovered/Not Resolved]
  - Euphoric mood [Not Recovered/Not Resolved]
  - Confusional state [Not Recovered/Not Resolved]
  - Motion sickness [Recovering/Resolving]
